FAERS Safety Report 4323537-2 (Version None)
Quarter: 2004Q1

REPORT INFORMATION
  Report Type: 
  Country: None (occurrence: None)
  Receive Date: 20040322
  Receipt Date: 20040310
  Transmission Date: 20041129
  Serious: Yes (Hospitalization)
  Sender: FDA-Public Use
  Company Number: 2004203503JP

PATIENT
  Age: 37 Year
  Sex: Male

DRUGS (1)
  1. MINOXIDIL [Suspect]
     Indication: MALE PATTERN BALDNESS
     Dosage: 1 ML, BID, TOPICL
     Route: 061
     Dates: start: 19990601, end: 20040218

REACTIONS (1)
  - FOLLICULAR THYROID CANCER [None]
